FAERS Safety Report 7087314-4 (Version None)
Quarter: 2010Q4

REPORT INFORMATION
  Report Type: 
  Country: None (occurrence: None)
  Receive Date: 20101108
  Receipt Date: 20101101
  Transmission Date: 20110411
  Serious: Yes (Death, Hospitalization)
  Sender: FDA-Public Use
  Company Number: GB-ELI_LILLY_AND_COMPANY-GB201009002144

PATIENT
  Age: 56 Year
  Sex: Male
  Weight: 67.982 kg

DRUGS (12)
  1. PEMETREXED [Suspect]
     Indication: MESOTHELIOMA
     Dosage: 900 MG, DAY 1 EVERY THREE WEEKS
     Route: 042
     Dates: start: 20100810
  2. CISPLATIN [Suspect]
     Indication: MESOTHELIOMA
     Dosage: 135 MG, DAY 1 EVERY THREE WEEKS
     Route: 042
     Dates: start: 20100810
  3. OTHER PHARMA COMPANY INV DRUG [Suspect]
     Indication: MESOTHELIOMA
     Dosage: 12 MG, DAY 7 PLUS OR MINUS 48 HOURS LEAD IN THEN DAY 1-3 EVERY 3 WEEKS
     Route: 042
     Dates: start: 20100728
  4. PARACETAMOL [Concomitant]
     Indication: ANALGESIC THERAPY
     Dates: start: 20100201
  5. INFUMORPH [Concomitant]
     Indication: ANALGESIC THERAPY
     Dates: start: 20100623, end: 20100816
  6. ORAMORPH SR [Concomitant]
     Indication: ANALGESIC THERAPY
     Dates: start: 20100623, end: 20100816
  7. FOLIC ACID [Concomitant]
     Indication: PROPHYLAXIS
     Dates: start: 20100727
  8. VITAMIN B-12 [Concomitant]
     Indication: PROPHYLAXIS
     Dates: start: 20100727
  9. DEXAMETHASONE [Concomitant]
     Indication: ANTIINFLAMMATORY THERAPY
     Dates: start: 20100723
  10. METOCLOPRAMIDE [Concomitant]
     Indication: ANTIEMETIC SUPPORTIVE CARE
     Dates: start: 20100808
  11. ONDANSETRON [Concomitant]
     Dates: start: 20100810
  12. AMITRIPTYLINE HCL [Concomitant]
     Indication: NIGHT SWEATS
     Dates: start: 20100623

REACTIONS (2)
  - FATIGUE [None]
  - PANCYTOPENIA [None]
